FAERS Safety Report 7095411-2 (Version None)
Quarter: 2010Q4

REPORT INFORMATION
  Report Type: 
  Country: None (occurrence: None)
  Receive Date: 20101111
  Receipt Date: 20101029
  Transmission Date: 20110411
  Serious: Yes (Death)
  Sender: FDA-Public Use
  Company Number: JP-BRISTOL-MYERS SQUIBB COMPANY-15269871

PATIENT
  Age: 82 Year
  Sex: Male

DRUGS (5)
  1. MAXIPIME [Suspect]
     Indication: PNEUMONIA ASPIRATION
     Route: 042
     Dates: start: 20100827, end: 20100902
  2. TAKEPRON [Suspect]
     Indication: GASTRIC ULCER
     Dosage: VIA GASTROSTOMY
     Dates: start: 20100823, end: 20100902
  3. MEXITIL [Suspect]
     Indication: VENTRICULAR TACHYCARDIA
     Dosage: VIA GASTROSTOMY
     Dates: start: 20100819, end: 20100902
  4. LASIX [Suspect]
     Indication: GENERALISED OEDEMA
     Route: 042
     Dates: start: 20100828, end: 20100902
  5. LASIX [Suspect]
     Indication: PLEURAL EFFUSION
     Route: 042
     Dates: start: 20100828, end: 20100902

REACTIONS (7)
  - BLOOD CULTURE POSITIVE [None]
  - DISSEMINATED INTRAVASCULAR COAGULATION [None]
  - KLEBSIELLA TEST POSITIVE [None]
  - PLATELET COUNT DECREASED [None]
  - PSEUDOMONAS TEST POSITIVE [None]
  - SEPSIS [None]
  - STAPHYLOCOCCAL INFECTION [None]
